FAERS Safety Report 7808205-4 (Version None)
Quarter: 2011Q4

REPORT INFORMATION
  Report Type: 
  Country: None (occurrence: None)
  Receive Date: 20111011
  Receipt Date: 20111003
  Transmission Date: 20120403
  Serious: Yes (Death)
  Sender: FDA-Public Use
  Company Number: US-GILEAD-2011-0044391

PATIENT

DRUGS (15)
  1. IMODIUM [Concomitant]
     Dosage: 2 MG, PRN
     Route: 048
  2. TYLENOL W/ CODEINE NO. 3 [Concomitant]
     Dosage: 1 DF, PRN
     Route: 048
  3. LETAIRIS [Suspect]
     Indication: PULMONARY HYPERTENSION
     Dosage: 10 MG, UNK
     Route: 048
     Dates: start: 20110322
  4. LEVOXYL [Concomitant]
     Dosage: 125 MG, QD
     Route: 048
  5. OMEPRAZOLE [Concomitant]
     Dosage: 20 MG, QD
     Route: 048
  6. ADCIRCA [Concomitant]
  7. FERROUS SULFATE TAB [Concomitant]
     Dosage: 325 MG, TID
     Route: 048
     Dates: start: 20110322
  8. BUMEX [Concomitant]
     Dosage: 1 MG, QD
     Route: 048
  9. TYLENOL (CAPLET) [Concomitant]
     Dosage: 500 MG, PRN
     Route: 048
  10. EPOPROSTENOL SODIUM [Concomitant]
  11. EPOPROSTENOL SODIUM [Concomitant]
  12. CALCIUM CARBONATE [Concomitant]
     Dosage: 600 MG, QD
     Route: 048
  13. LYRICA [Concomitant]
     Dosage: 50 MG, TID
     Route: 048
  14. RECLAST [Concomitant]
     Dosage: 1 DF, UNK
     Route: 042
  15. POTASSIUM CHLORIDE [Concomitant]
     Dosage: 20 MEQ, BID
     Dates: start: 20110413

REACTIONS (1)
  - MYELODYSPLASTIC SYNDROME [None]
